FAERS Safety Report 18984392 (Version 1)
Quarter: 2021Q1

REPORT INFORMATION
  Report Type: Spontaneous
  Country: US (occurrence: US)
  Receive Date: 20210309
  Receipt Date: 20210309
  Transmission Date: 20210420
  Serious: Yes (Other)
  Sender: FDA-Public Use
  Company Number: US-SUN PHARMACEUTICAL INDUSTRIES LTD-2021R1-284554

PATIENT
  Age: 26 Year
  Sex: Male

DRUGS (2)
  1. DOCETAXEL. [Suspect]
     Active Substance: DOCETAXEL
     Indication: CHEMOTHERAPY
     Dosage: UNK (100 MG/M2 ON DAY 8; EVERY THREE WEEKS; THREE CYCLES)
     Route: 065
  2. GEMCITABINE. [Suspect]
     Active Substance: GEMCITABINE
     Indication: CHEMOTHERAPY
     Dosage: UNK (900 MG/M2 ON DAYS 1 AND 8; EVERY THREE WEEKS; THREE CYCLES)
     Route: 065

REACTIONS (1)
  - Dermatitis [Unknown]
